FAERS Safety Report 18774290 (Version 1)
Quarter: 2021Q1

REPORT INFORMATION
  Report Type: Spontaneous
  Country: US (occurrence: US)
  Receive Date: 20210122
  Receipt Date: 20210122
  Transmission Date: 20210419
  Serious: Yes (Other)
  Sender: FDA-Public Use
  Company Number: None

PATIENT
  Age: 85 Year
  Sex: Male
  Weight: 70.1 kg

DRUGS (1)
  1. OTEZLA [Suspect]
     Active Substance: APREMILAST
     Indication: PSORIASIS
     Route: 048
     Dates: start: 20201029, end: 20201230

REACTIONS (3)
  - Rash [None]
  - Dermatitis psoriasiform [None]
  - Drug hypersensitivity [None]

NARRATIVE: CASE EVENT DATE: 20201230
